FAERS Safety Report 12127364 (Version 1)
Quarter: 2016Q1

REPORT INFORMATION
  Report Type: Spontaneous
  Country: IN (occurrence: IN)
  Receive Date: 20160229
  Receipt Date: 20160229
  Transmission Date: 20160526
  Serious: Yes (Other)
  Sender: FDA-Public Use
  Company Number: IN-PFIZER INC-2016123382

PATIENT
  Age: 58 Year
  Sex: Female

DRUGS (1)
  1. AROMASIN [Suspect]
     Active Substance: EXEMESTANE
     Indication: BREAST CANCER
     Dosage: 25 MG, 1X/DAY
     Route: 048
     Dates: start: 201307

REACTIONS (9)
  - Neuropathy peripheral [Unknown]
  - Paraesthesia [Unknown]
  - Onychomadesis [Unknown]
  - Foot deformity [Unknown]
  - Hypoaesthesia [Unknown]
  - Gait disturbance [Recovered/Resolved]
  - Decreased vibratory sense [Unknown]
  - Diabetes mellitus [Unknown]
  - Nail discolouration [Unknown]
